FAERS Safety Report 25314399 (Version 1)
Quarter: 2025Q2

REPORT INFORMATION
  Report Type: Spontaneous
  Country: US (occurrence: US)
  Receive Date: 20250514
  Receipt Date: 20250514
  Transmission Date: 20250716
  Serious: Yes (Other)
  Sender: INTERCHEM
  Company Number: US-HQ SPECIALTY-US-2025INT000033

PATIENT
  Age: 56 Year
  Sex: Female

DRUGS (3)
  1. DEXMEDETOMIDINE HYDROCHLORIDE [Suspect]
     Active Substance: DEXMEDETOMIDINE HYDROCHLORIDE
     Indication: Pain
     Dosage: INITIATED 0.2 UG/KG/HR (0.2 UG/KG)
     Route: 042
  2. DEXMEDETOMIDINE HYDROCHLORIDE [Suspect]
     Active Substance: DEXMEDETOMIDINE HYDROCHLORIDE
     Indication: Cancer pain
     Dosage: TITRATED UP TO 1.2 UG/KG/HR (1.2 UG/KG)
     Route: 042
  3. MORPHINE [Concomitant]
     Active Substance: MORPHINE
     Indication: Cancer pain
     Route: 065

REACTIONS (7)
  - Pelvic pain [Unknown]
  - Drug withdrawal syndrome [Unknown]
  - Tachycardia [Unknown]
  - Nausea [Unknown]
  - Vomiting [Unknown]
  - Drug effective for unapproved indication [Unknown]
  - Product use in unapproved indication [Recovered/Resolved]
